FAERS Safety Report 14269230 (Version 2)
Quarter: 2018Q4

REPORT INFORMATION
  Report Type: Spontaneous
  Country: US (occurrence: US)
  Receive Date: 20171211
  Receipt Date: 20181219
  Transmission Date: 20190204
  Serious: Yes (Disabling, Other)
  Sender: FDA-Public Use
  Company Number: US-OTSUKA-2017_013360

PATIENT
  Age: 36 Year
  Sex: Male

DRUGS (3)
  1. ABILIFY [Suspect]
     Active Substance: ARIPIPRAZOLE
     Indication: BIPOLAR DISORDER
     Dosage: 5 MG, UNK
     Route: 065
  2. ABILIFY [Suspect]
     Active Substance: ARIPIPRAZOLE
     Indication: PSYCHOTIC DISORDER
     Dosage: 10 MG, UNK
     Route: 065
     Dates: end: 2016
  3. ABILIFY [Suspect]
     Active Substance: ARIPIPRAZOLE
     Indication: ATTENTION DEFICIT/HYPERACTIVITY DISORDER
     Dosage: UNK
     Route: 065

REACTIONS (11)
  - Injury [Unknown]
  - Anhedonia [Unknown]
  - Anxiety [Unknown]
  - Disability [Unknown]
  - Condition aggravated [Unknown]
  - Gambling disorder [Not Recovered/Not Resolved]
  - Eating disorder [Recovered/Resolved]
  - Economic problem [Unknown]
  - Diabetes mellitus [Unknown]
  - Weight increased [Unknown]
  - Loss of employment [Unknown]

NARRATIVE: CASE EVENT DATE: 200503
